FAERS Safety Report 15222807 (Version 1)
Quarter: 2018Q3

REPORT INFORMATION
  Report Type: Spontaneous
  Country: US (occurrence: US)
  Receive Date: 20180705
  Receipt Date: 20180705
  Transmission Date: 20181010
  Serious: Yes (Hospitalization)
  Sender: FDA-Public Use
  Company Number: None

PATIENT
  Sex: Male

DRUGS (6)
  1. ATORVASTATIN [Concomitant]
     Active Substance: ATORVASTATIN
  2. STELARA [Suspect]
     Active Substance: USTEKINUMAB
     Indication: PSORIATIC ARTHROPATHY
     Dosage: ?          OTHER FREQUENCY:Q 12 WEEKS;?
     Route: 058
     Dates: start: 20170729
  3. OTEZLA [Concomitant]
     Active Substance: APREMILAST
  4. ZOLPIDEM [Suspect]
     Active Substance: ZOLPIDEM\ZOLPIDEM TARTRATE
  5. CLINDAAMYCIN [Concomitant]
  6. SZM/TMP [Concomitant]

REACTIONS (4)
  - Therapy non-responder [None]
  - Cellulitis [None]
  - Infection [None]
  - Peripheral swelling [None]
